FAERS Safety Report 17676477 (Version 1)
Quarter: 2020Q2

REPORT INFORMATION
  Report Type: Spontaneous
  Country: PL (occurrence: PL)
  Receive Date: 20200416
  Receipt Date: 20200416
  Transmission Date: 20200714
  Serious: Yes (Death, Other)
  Sender: FDA-Public Use
  Company Number: PL-ROCHE-2576803

PATIENT
  Age: 64 Year
  Sex: Male

DRUGS (2)
  1. ROACTEMRA [Suspect]
     Active Substance: TOCILIZUMAB
     Indication: PNEUMONIA
     Route: 065
     Dates: start: 2020, end: 2020
  2. ROACTEMRA [Suspect]
     Active Substance: TOCILIZUMAB
     Indication: RESPIRATORY FAILURE

REACTIONS (7)
  - Cardiovascular insufficiency [Not Recovered/Not Resolved]
  - Myocarditis [Unknown]
  - Off label use [Unknown]
  - Blood pressure increased [Unknown]
  - Respiratory failure [Unknown]
  - Pneumonia [Unknown]
  - Death [Fatal]

NARRATIVE: CASE EVENT DATE: 2020
